FAERS Safety Report 8414714-X (Version None)
Quarter: 2012Q2

REPORT INFORMATION
  Report Type: 
  Country: None (occurrence: None)
  Receive Date: 20120605
  Receipt Date: 20120525
  Transmission Date: 20120825
  Serious: Yes (Hospitalization, Other)
  Sender: FDA-Public Use
  Company Number: AU-ELI_LILLY_AND_COMPANY-AU201205009097

PATIENT
  Age: 69 Year
  Sex: Female

DRUGS (5)
  1. STATIN                             /00084401/ [Concomitant]
     Indication: BLOOD CHOLESTEROL INCREASED
  2. CARDIZEM [Concomitant]
     Indication: BLOOD PRESSURE
     Dosage: 180 MG, UNK
  3. BYETTA [Suspect]
     Dosage: 10 UG, UNKNOWN
  4. BYETTA [Suspect]
     Indication: TYPE 2 DIABETES MELLITUS
     Dosage: 5 UG, UNKNOWN
     Dates: start: 20111001
  5. PLAVIX [Concomitant]
     Dosage: 75 MG, UNK

REACTIONS (7)
  - ABDOMINAL PAIN [None]
  - NAUSEA [None]
  - ERUCTATION [None]
  - CARDIAC DISORDER [None]
  - ABDOMINAL DISTENSION [None]
  - HYPERHIDROSIS [None]
  - BLOOD CALCIUM DECREASED [None]
